FAERS Safety Report 5400097-6 (Version None)
Quarter: 2007Q3

REPORT INFORMATION
  Report Type: 
  Country: None (occurrence: None)
  Receive Date: 20070725
  Receipt Date: 20070709
  Transmission Date: 20080115
  Serious: Yes (Other)
  Sender: FDA-Public Use
  Company Number: 000#8#2007-00213

PATIENT
  Age: 14 Day
  Sex: Female

DRUGS (1)
  1. ALPROSTADIL [Suspect]
     Indication: CYANOSIS
     Route: 041

REACTIONS (8)
  - CARDIAC MURMUR [None]
  - CATHETER RELATED COMPLICATION [None]
  - DILATATION ATRIAL [None]
  - NECROTISING COLITIS [None]
  - RHABDOMYOMA [None]
  - RIGHT VENTRICULAR HYPERTROPHY [None]
  - SUPRAVENTRICULAR TACHYCARDIA [None]
  - VENOUS THROMBOSIS [None]
